FAERS Safety Report 19810037 (Version 6)
Quarter: 2021Q3

REPORT INFORMATION
  Report Type: Report from Study
  Country: None (occurrence: ES)
  Receive Date: 20210909
  Receipt Date: 20210922
  Transmission Date: 20211014
  Serious: Yes (Hospitalization)
  Sender: FDA-Public Use
  Company Number: ES-ABBVIE-21K-144-4061032-00

PATIENT
  Age: 67 Year
  Sex: Female
  Weight: 73 kg

DRUGS (3)
  1. DUODOPA [Suspect]
     Active Substance: CARBIDOPA\LEVODOPA
     Indication: PARKINSON^S DISEASE
     Dosage: MORNING DOSE: 13ML; CONTINUOUS DOSE: 4.9ML/H; EXTRA DOSE: 2ML
     Route: 050
     Dates: start: 20210823
  2. DUODOPA [Suspect]
     Active Substance: CARBIDOPA\LEVODOPA
  3. SINEMET [Concomitant]
     Active Substance: CARBIDOPA\LEVODOPA
     Indication: PRODUCT USED FOR UNKNOWN INDICATION
     Route: 048
     Dates: start: 20210906, end: 20210906

REACTIONS (8)
  - Faecaloma [Recovered/Resolved]
  - Nausea [Recovered/Resolved]
  - Pneumoperitoneum [Recovered/Resolved]
  - Peritonitis [Recovered/Resolved]
  - Gastric perforation [Recovered/Resolved]
  - Abdominal pain [Recovered/Resolved]
  - Off label use [Recovered/Resolved]
  - Device dislocation [Recovered/Resolved]

NARRATIVE: CASE EVENT DATE: 20210827
